FAERS Safety Report 19516068 (Version 3)
Quarter: 2021Q3

REPORT INFORMATION
  Report Type: Spontaneous
  Country: US (occurrence: US)
  Receive Date: 20210709
  Receipt Date: 20210831
  Transmission Date: 20211014
  Serious: No
  Sender: FDA-Public Use
  Company Number: US-ASTELLAS-2021US019828

PATIENT
  Age: 90 Year
  Sex: Female

DRUGS (2)
  1. MYRBETRIQ [Suspect]
     Active Substance: MIRABEGRON
     Indication: BLADDER DISORDER
     Dosage: UNK UNK, ONCE DAILY (STARTED ABOUT 2 YEARS)
     Route: 065
  2. OXYBUTYNIN. [Suspect]
     Active Substance: OXYBUTYNIN CHLORIDE
     Indication: BLADDER DISORDER
     Dosage: 1 DF, EVERY 12 HOURS (ONE IN THE MORNING AND THE OTHER AT NIGHT)
     Route: 065

REACTIONS (4)
  - Bladder disorder [Unknown]
  - Condition aggravated [Unknown]
  - Dry mouth [Unknown]
  - Therapeutic product effect incomplete [Unknown]
